FAERS Safety Report 10280030 (Version 1)
Quarter: 2014Q3

REPORT INFORMATION
  Report Type: Spontaneous
  Country: US (occurrence: None)
  Receive Date: 20140701
  Receipt Date: 20140701
  Transmission Date: 20150326
  Serious: Yes (Hospitalization)
  Sender: FDA-Public Use
  Company Number: None

PATIENT
  Age: 56 Year
  Sex: Female
  Weight: 74.39 kg

DRUGS (1)
  1. JANUVIA [Suspect]
     Active Substance: SITAGLIPTIN PHOSPHATE
     Indication: TYPE 2 DIABETES MELLITUS
     Dosage: 1 PER DAY  ONCE DAILY TAKEN BY MOUTH
     Route: 048
     Dates: start: 20140106, end: 20140606

REACTIONS (3)
  - Chest discomfort [None]
  - Respiratory distress [None]
  - Nausea [None]

NARRATIVE: CASE EVENT DATE: 20140505
